FAERS Safety Report 8078658-8 (Version None)
Quarter: 2012Q1

REPORT INFORMATION
  Report Type: 
  Country: None (occurrence: None)
  Receive Date: 20120124
  Receipt Date: 20120110
  Transmission Date: 20120608
  Serious: Yes (Other)
  Sender: FDA-Public Use
  Company Number: JP-2012-10227

PATIENT
  Age: 85 Year
  Sex: Male

DRUGS (1)
  1. PLETAL [Suspect]
     Dosage: , ORAL
     Route: 048

REACTIONS (2)
  - FALL [None]
  - WRIST FRACTURE [None]
